FAERS Safety Report 5586323-1 (Version None)
Quarter: 2008Q1

REPORT INFORMATION
  Report Type: 
  Country: None (occurrence: None)
  Receive Date: 20080110
  Receipt Date: 20071220
  Transmission Date: 20080703
  Serious: Yes (Other)
  Sender: FDA-Public Use
  Company Number: SE-BAYER-200810166GPV

PATIENT
  Age: 60 Year
  Sex: Female

DRUGS (1)
  1. ULTRAVIST (PHARMACY BULK) [Suspect]
     Indication: X-RAY
     Dosage: AS USED: 72 ML
     Route: 042
     Dates: start: 20070312, end: 20070312

REACTIONS (3)
  - ANGIOEDEMA [None]
  - DYSPHAGIA [None]
  - URTICARIA [None]
